FAERS Safety Report 7151178-0 (Version None)
Quarter: 2010Q4

REPORT INFORMATION
  Report Type: 
  Country: None (occurrence: None)
  Receive Date: 20101210
  Receipt Date: 20100622
  Transmission Date: 20110411
  Serious: Yes (Hospitalization)
  Sender: FDA-Public Use
  Company Number: PHHY2010US30005

PATIENT
  Sex: Female

DRUGS (13)
  1. RECLAST [Suspect]
     Indication: OSTEOPOROSIS
     Dosage: UNK
     Route: 042
     Dates: start: 20100430
  2. ACIPHEX [Concomitant]
     Dosage: 20 MG, BID
     Route: 048
  3. CALCIUM W/VITAMIN D NOS [Concomitant]
  4. FLORESTOR [Concomitant]
     Dosage: TID
  5. PULMICORT [Concomitant]
     Dosage: BID
  6. XOPENEX [Concomitant]
     Indication: ASTHMA
     Dosage: AS NEEDED
  7. MAXAIR [Concomitant]
     Indication: ASTHMA
     Dosage: AS NEEDED
  8. ANTIBIOTICS [Concomitant]
  9. OS-CAL D [Concomitant]
     Dosage: TID
  10. PERCOCET [Concomitant]
     Dosage: 5/325 MG, 1 TAB Q4 H/ PRN
  11. NAPROXEN [Concomitant]
     Dosage: 500 MG, BID
     Route: 048
  12. ICE PACKS [Concomitant]
  13. NSAID'S [Concomitant]

REACTIONS (20)
  - ARTHRALGIA [None]
  - ARTHRITIS [None]
  - BACK PAIN [None]
  - BEDRIDDEN [None]
  - C-REACTIVE PROTEIN INCREASED [None]
  - DRUG HYPERSENSITIVITY [None]
  - ERYTHEMA [None]
  - GAIT DISTURBANCE [None]
  - HEART RATE INCREASED [None]
  - JOINT SWELLING [None]
  - MUSCULOSKELETAL PAIN [None]
  - NAUSEA [None]
  - OEDEMA PERIPHERAL [None]
  - PAIN [None]
  - PALPITATIONS [None]
  - PYREXIA [None]
  - RASH MACULO-PAPULAR [None]
  - RED BLOOD CELL SEDIMENTATION RATE INCREASED [None]
  - SERUM SICKNESS [None]
  - TENDERNESS [None]
